FAERS Safety Report 8809132 (Version 1)
Quarter: 2012Q4

REPORT INFORMATION
  Report Type: 
  Country: FR (occurrence: FR)
  Receive Date: 20120926
  Receipt Date: 20120926
  Transmission Date: 20130627
  Serious: Yes (Hospitalization)
  Sender: FDA-Public Use
  Company Number: FR-ASTRAZENECA-2012SE72557

PATIENT
  Age: 29435 Day
  Sex: Female

DRUGS (8)
  1. INEXIUM [Suspect]
     Route: 048
     Dates: start: 20110915
  2. INEXIUM [Suspect]
     Dosage: dose was decreased
     Route: 048
     Dates: start: 20110920, end: 20110921
  3. LIPIDIOL [Concomitant]
  4. ADRIAMYCINE [Concomitant]
     Route: 042
     Dates: start: 20110913, end: 20110913
  5. AMLOR [Concomitant]
  6. MINPARA [Concomitant]
  7. FEROGRAD [Concomitant]
  8. ARANESP [Concomitant]

REACTIONS (4)
  - Persecutory delusion [Unknown]
  - Anxiety [Unknown]
  - Hallucination, visual [Recovered/Resolved]
  - Confusional state [Unknown]
